FAERS Safety Report 25744418 (Version 1)
Quarter: 2025Q3

REPORT INFORMATION
  Report Type: Report from Study
  Country: JP (occurrence: JP)
  Receive Date: 20250901
  Receipt Date: 20250901
  Transmission Date: 20251021
  Serious: Yes (Death, Other)
  Sender: CHIESI
  Company Number: JP-AMRYT PHARMACEUTICALS DAC-AEGR005824

PATIENT
  Age: 30 Year
  Sex: Male

DRUGS (17)
  1. LOMITAPIDE [Suspect]
     Active Substance: LOMITAPIDE
     Indication: Type IIa hyperlipidaemia
     Dosage: 5 MILLIGRAM, QD
     Route: 048
     Dates: start: 20201202
  2. LOMITAPIDE [Suspect]
     Active Substance: LOMITAPIDE
     Indication: Low density lipoprotein decreased
     Route: 048
     Dates: start: 20201202
  3. LOMITAPIDE [Suspect]
     Active Substance: LOMITAPIDE
     Route: 048
     Dates: start: 20201202
  4. LOMITAPIDE [Suspect]
     Active Substance: LOMITAPIDE
     Route: 048
     Dates: start: 20201202
  5. LOMITAPIDE [Suspect]
     Active Substance: LOMITAPIDE
     Route: 048
     Dates: start: 20201202
  6. LOMITAPIDE [Suspect]
     Active Substance: LOMITAPIDE
     Route: 048
     Dates: start: 20201202
  7. LOMITAPIDE [Suspect]
     Active Substance: LOMITAPIDE
     Route: 048
     Dates: start: 20201202
  8. LOMITAPIDE [Suspect]
     Active Substance: LOMITAPIDE
     Route: 048
     Dates: start: 20201202
  9. SPIRONOLACTONE [Concomitant]
     Active Substance: SPIRONOLACTONE
     Indication: Cardiac failure
     Dosage: 25 MILLIGRAM, QD
     Route: 048
  10. BISOPROLOL FUMARATE [Concomitant]
     Active Substance: BISOPROLOL FUMARATE
     Indication: Cardiac failure
     Dosage: 5 MILLIGRAM, QD
     Route: 048
  11. ASPIRIN [Concomitant]
     Active Substance: ASPIRIN
     Indication: Myocardial infarction
     Dosage: 100 MILLIGRAM, QD
     Route: 048
  12. PRASUGREL HYDROCHLORIDE [Concomitant]
     Active Substance: PRASUGREL HYDROCHLORIDE
     Indication: Myocardial infarction
     Dosage: 3.75 MILLIGRAM, QD
     Route: 048
  13. VONOPRAZAN FUMARATE [Concomitant]
     Active Substance: VONOPRAZAN FUMARATE
     Indication: Prophylaxis
     Dosage: 10 MILLIGRAM, QD
     Route: 048
  14. AZOSEMIDE [Concomitant]
     Active Substance: AZOSEMIDE
     Indication: Cardiac failure
     Dosage: 60 MILLIGRAM, QD
     Route: 048
  15. EZETIMIBE\ROSUVASTATIN [Concomitant]
     Active Substance: EZETIMIBE\ROSUVASTATIN
     Indication: Hypercholesterolaemia
     Dosage: 10 MILLIGRAM, QD
  16. REPATHA [Concomitant]
     Active Substance: EVOLOCUMAB
     Indication: Hypercholesterolaemia
     Dosage: 420 MILLIGRAM, QM
     Route: 058
  17. ROSUVASTATIN [Concomitant]
     Active Substance: ROSUVASTATIN
     Indication: Product used for unknown indication
     Dosage: 10 MILLIGRAM, QD

REACTIONS (9)
  - Death [Fatal]
  - Cardio-respiratory arrest [Fatal]
  - Aortic valve incompetence [Unknown]
  - Coronary artery bypass [Recovered/Resolved]
  - Aortic valve repair [Recovered/Resolved]
  - Vascular stent occlusion [Unknown]
  - Supravalvular aortic stenosis [Unknown]
  - Cardio-respiratory distress [Unknown]
  - Therapeutic product effect incomplete [Unknown]

NARRATIVE: CASE EVENT DATE: 20210331
